FAERS Safety Report 4886025-0 (Version None)
Quarter: 2006Q1

REPORT INFORMATION
  Report Type: 
  Country: None (occurrence: None)
  Receive Date: 20060118
  Receipt Date: 20060118
  Transmission Date: 20060701
  Serious: No
  Sender: FDA-Public Use
  Company Number: None

PATIENT
  Age: 71 Year
  Sex: Female
  Weight: 54.1 kg

DRUGS (1)
  1. VANCOMYCIN [Suspect]
     Indication: SPINAL DISORDER
     Dosage: 1 GM Q 48 HRS IV
     Route: 042
     Dates: start: 20051114, end: 20060113

REACTIONS (2)
  - DRUG LEVEL INCREASED [None]
  - TINNITUS [None]
